FAERS Safety Report 5230381-0 (Version None)
Quarter: 2007Q1

REPORT INFORMATION
  Report Type: 
  Country: None (occurrence: None)
  Receive Date: 20070201
  Receipt Date: 20070116
  Transmission Date: 20070707
  Serious: Yes (Hospitalization)
  Sender: FDA-Public Use
  Company Number: 2007PV028312

PATIENT
  Age: 54 Year
  Sex: Female
  Weight: 104 kg

DRUGS (5)
  1. BYETTA [Suspect]
     Indication: DIABETES MELLITUS NON-INSULIN-DEPENDENT
     Dosage: 10 MCG; SC
     Route: 058
     Dates: start: 20060920, end: 20070105
  2. ACTOS [Concomitant]
  3. SIMVASTATIN [Concomitant]
  4. DOMPERIDONE [Concomitant]
  5. HUMALOG NPL [Concomitant]

REACTIONS (4)
  - HYPERGLYCAEMIA [None]
  - NAUSEA [None]
  - URTICARIA [None]
  - WEIGHT DECREASED [None]
